FAERS Safety Report 7184670-3 (Version None)
Quarter: 2010Q4

REPORT INFORMATION
  Report Type: 
  Country: None (occurrence: None)
  Receive Date: 20101222
  Receipt Date: 20101215
  Transmission Date: 20110411
  Serious: Yes (Life-Threatening)
  Sender: FDA-Public Use
  Company Number: TR-ASTRAZENECA-2010SE59361

PATIENT
  Sex: Female

DRUGS (5)
  1. NEXIUM [Suspect]
     Indication: GASTROENTERITIS
     Route: 042
     Dates: start: 20101215
  2. BUSCOPAN [Interacting]
     Indication: GASTROENTERITIS
     Route: 042
     Dates: start: 20101215
  3. METPAMID [Interacting]
     Indication: GASTROENTERITIS
     Route: 042
     Dates: start: 20101215
  4. BEMIKS [Interacting]
     Indication: GASTROENTERITIS
     Route: 042
     Dates: start: 20101215
  5. CLARITHROMYCIN [Concomitant]
     Indication: UPPER RESPIRATORY TRACT INFECTION

REACTIONS (2)
  - ANAPHYLACTIC SHOCK [None]
  - DRUG INTERACTION [None]
